FAERS Safety Report 12634942 (Version 1)
Quarter: 2016Q3

REPORT INFORMATION
  Report Type: Spontaneous
  Country: US (occurrence: US)
  Receive Date: 20160809
  Receipt Date: 20160809
  Transmission Date: 20161109
  Serious: No
  Sender: FDA-Public Use
  Company Number: US-PFIZER INC-2016352646

PATIENT
  Sex: Female
  Weight: 55 kg

DRUGS (3)
  1. PROAIR HFA [Concomitant]
     Active Substance: ALBUTEROL SULFATE
     Dosage: 90 MCG, INHALER, 2 PUFFS EVERY 6 HOURS AS NEEDED
  2. AMLODIPINE BESILATE [Suspect]
     Active Substance: AMLODIPINE BESYLATE
     Indication: BLOOD PRESSURE ABNORMAL
     Dosage: 5 MG, PILL, ORALLY, ONCE A DAY
     Route: 048
  3. SYMBICORT [Concomitant]
     Active Substance: BUDESONIDE\FORMOTEROL FUMARATE DIHYDRATE
     Indication: CHRONIC OBSTRUCTIVE PULMONARY DISEASE
     Dosage: [BUDESONIDE 80 MCG]/[FORMOTEROL FUMARATE 4.5 MCG] 2 PUFFS 2 TIMES A DAY

REACTIONS (1)
  - Peripheral swelling [Recovered/Resolved]
